FAERS Safety Report 7718879-4 (Version None)
Quarter: 2011Q3

REPORT INFORMATION
  Report Type: 
  Country: None (occurrence: None)
  Receive Date: 20110830
  Receipt Date: 20110825
  Transmission Date: 20111222
  Serious: Yes (Other)
  Sender: FDA-Public Use
  Company Number: JP-PFIZER INC-2011189714

PATIENT
  Age: 29 Year
  Sex: Female

DRUGS (3)
  1. PREMARIN [Suspect]
     Indication: INFERTILITY FEMALE
  2. DUPHASTON [Concomitant]
  3. PREMARIN [Suspect]
     Indication: OFF LABEL USE
     Dosage: UNK

REACTIONS (1)
  - UTERINE HAEMORRHAGE [None]
